FAERS Safety Report 24981478 (Version 1)
Quarter: 2025Q1

REPORT INFORMATION
  Report Type: Spontaneous
  Country: US (occurrence: None)
  Receive Date: 20250218
  Receipt Date: 20250218
  Transmission Date: 20250409
  Serious: Yes (Death)
  Sender: FDA-CTU
  Company Number: None

PATIENT
  Age: 75 Year
  Sex: Female

DRUGS (3)
  1. AMIODARONE HYDROCHLORIDE [Suspect]
     Active Substance: AMIODARONE HYDROCHLORIDE
     Indication: Heart valve incompetence
     Dates: start: 20230209, end: 202403
  2. Vit. B [Concomitant]
  3. VITAMIN C [Concomitant]
     Active Substance: ASCORBIC ACID

REACTIONS (7)
  - Fatigue [None]
  - Dyspnoea [None]
  - Asthenia [None]
  - Interstitial lung disease [None]
  - Pneumonitis [None]
  - Loss of personal independence in daily activities [None]
  - Therapy non-responder [None]

NARRATIVE: CASE EVENT DATE: 20230209
